FAERS Safety Report 4540601-3 (Version None)
Quarter: 2004Q4

REPORT INFORMATION
  Report Type: 
  Country: None (occurrence: None)
  Receive Date: 20041229
  Receipt Date: 20041209
  Transmission Date: 20050328
  Serious: Yes (Other)
  Sender: FDA-Public Use
  Company Number: PHEH2004US13208

PATIENT
  Age: 4 Year
  Sex: Male

DRUGS (4)
  1. DILANTIN [Concomitant]
     Indication: CONVULSION
     Dosage: 300 MG, UNK
  2. PHENOBARBITAL TAB [Concomitant]
     Indication: CONVULSION
     Dosage: 120 MG, UNK
  3. PREVACID [Suspect]
     Indication: DYSPEPSIA
     Dosage: 90 MG, UNK
     Route: 048
  4. TEGRETOL [Suspect]
     Indication: CONVULSION
     Dosage: 400 MG, TID
     Route: 048
     Dates: start: 20040510

REACTIONS (5)
  - ANTICONVULSANT DRUG LEVEL DECREASED [None]
  - APNOEA [None]
  - DRUG INTERACTION [None]
  - GRAND MAL CONVULSION [None]
  - OXYGEN SATURATION DECREASED [None]
